FAERS Safety Report 25268567 (Version 1)
Quarter: 2025Q2

REPORT INFORMATION
  Report Type: Spontaneous
  Country: US (occurrence: None)
  Receive Date: 20250502
  Receipt Date: 20250502
  Transmission Date: 20250716
  Serious: No
  Sender: FDA-CTU
  Company Number: None

PATIENT
  Age: 79 Year
  Sex: Female

DRUGS (2)
  1. TACROLIMUS [Suspect]
     Active Substance: TACROLIMUS
     Indication: Liver transplant
     Dosage: 1 MG TWICE A DAY ORAL
     Route: 048
     Dates: start: 20250426, end: 20250430
  2. TACROLIMUS [Concomitant]
     Active Substance: TACROLIMUS
     Dates: start: 20250426, end: 20250430

REACTIONS (4)
  - Diarrhoea [None]
  - Dizziness [None]
  - Balance disorder [None]
  - Fatigue [None]

NARRATIVE: CASE EVENT DATE: 20250502
